FAERS Safety Report 6416831-2 (Version None)
Quarter: 2009Q4

REPORT INFORMATION
  Report Type: 
  Country: None (occurrence: None)
  Receive Date: 20091027
  Receipt Date: 20091013
  Transmission Date: 20100525
  Serious: Yes (Hospitalization)
  Sender: FDA-Public Use
  Company Number: IT-MYLANLABS-2009S1017860

PATIENT
  Age: 45 Year
  Sex: Female

DRUGS (1)
  1. RISPERIDONE [Suspect]
     Indication: SCHIZOPHRENIA, DISORGANISED TYPE
     Dosage: DOSAGE NOT STATED

REACTIONS (3)
  - HYPERAMYLASAEMIA [None]
  - HYPERLIPASAEMIA [None]
  - NEUROLEPTIC MALIGNANT SYNDROME [None]
